FAERS Safety Report 7015235-1 (Version None)
Quarter: 2010Q3

REPORT INFORMATION
  Report Type: 
  Country: None (occurrence: None)
  Receive Date: 20100927
  Receipt Date: 20100805
  Transmission Date: 20110219
  Serious: Yes (Death, Hospitalization)
  Sender: FDA-Public Use
  Company Number: US-US-EMD SERONO, INC.-235479K09USA

PATIENT
  Sex: Female

DRUGS (5)
  1. REBIF [Suspect]
     Indication: MULTIPLE SCLEROSIS
     Route: 058
     Dates: start: 20090501, end: 20090530
  2. REBIF [Suspect]
     Route: 058
     Dates: start: 20090101, end: 20090901
  3. LASIX [Concomitant]
     Indication: FLUID RETENTION
     Route: 065
  4. LOPRESSOR [Concomitant]
     Indication: HEART RATE IRREGULAR
     Route: 065
  5. AMITRIPTYLINE HCL [Concomitant]
     Indication: ANXIETY
     Route: 065

REACTIONS (7)
  - CARDIAC ARREST [None]
  - HEART RATE DECREASED [None]
  - HYPOTENSION [None]
  - MULTIPLE SCLEROSIS RELAPSE [None]
  - NEUROMYELITIS OPTICA [None]
  - OEDEMA PERIPHERAL [None]
  - PARAESTHESIA [None]
